FAERS Safety Report 6101667-2 (Version None)
Quarter: 2009Q1

REPORT INFORMATION
  Report Type: 
  Country: None (occurrence: None)
  Receive Date: 20090304
  Receipt Date: 20090223
  Transmission Date: 20090719
  Serious: Yes (Congenital Anomaly)
  Sender: FDA-Public Use
  Company Number: FR-JNJFOC-20090205983

PATIENT
  Sex: Female
  Weight: 2.57 kg

DRUGS (3)
  1. EPITOMAX [Suspect]
     Indication: DRUG EXPOSURE DURING PREGNANCY
  2. DI-HYDAN [Suspect]
     Indication: DRUG EXPOSURE DURING PREGNANCY
  3. TEGRETOL [Suspect]
     Indication: DRUG EXPOSURE DURING PREGNANCY

REACTIONS (5)
  - CONGENITAL NAIL DISORDER [None]
  - DYSMORPHISM [None]
  - HEART DISEASE CONGENITAL [None]
  - HIP DYSPLASIA [None]
  - LIMB MALFORMATION [None]
